FAERS Safety Report 6668235-5 (Version None)
Quarter: 2010Q2

REPORT INFORMATION
  Report Type: 
  Country: None (occurrence: None)
  Receive Date: 20100406
  Receipt Date: 20100328
  Transmission Date: 20101027
  Serious: Yes (Other)
  Sender: FDA-Public Use
  Company Number: US-JNJFOC-20090807687

PATIENT
  Sex: Male
  Weight: 95.26 kg

DRUGS (7)
  1. LEVAQUIN [Suspect]
     Indication: BRONCHITIS
     Route: 048
     Dates: start: 20081112
  2. LEVAQUIN [Suspect]
     Indication: PNEUMONIA
     Route: 048
     Dates: start: 20081112
  3. ATIVAN [Concomitant]
     Route: 065
  4. OMEPRAZOLE [Concomitant]
     Route: 065
  5. LYRICA [Concomitant]
     Indication: ARTHRALGIA
     Route: 065
  6. OSTEO BI-FLEX [Concomitant]
     Indication: ARTHRALGIA
     Route: 065
  7. UNKNOWN ANTIHYPERTENSIVE DRUG [Concomitant]
     Indication: BLOOD PRESSURE
     Route: 065

REACTIONS (12)
  - ARTHRALGIA [None]
  - ARTHROPATHY [None]
  - ASTHENIA [None]
  - BLISTER [None]
  - IMMUNE SYSTEM DISORDER [None]
  - JOINT SWELLING [None]
  - LIGAMENT PAIN [None]
  - MUSCULOSKELETAL PAIN [None]
  - OEDEMA PERIPHERAL [None]
  - RASH [None]
  - SKIN LESION [None]
  - TENDONITIS [None]
